FAERS Safety Report 18190222 (Version 2)
Quarter: 2020Q3

REPORT INFORMATION
  Report Type: Spontaneous
  Country: CA (occurrence: CA)
  Receive Date: 20200825
  Receipt Date: 20200915
  Transmission Date: 20201103
  Serious: Yes (Death)
  Sender: FDA-Public Use
  Company Number: CA-TEVA-2020-CA-1818126

PATIENT
  Age: 87 Year
  Sex: Male

DRUGS (6)
  1. MIDAZOLAM (UNKNOWN) [Suspect]
     Active Substance: MIDAZOLAM HYDROCHLORIDE
     Route: 065
  2. VERAPAMIL HCL [Suspect]
     Active Substance: VERAPAMIL HYDROCHLORIDE
  3. MORPHINE [Suspect]
     Active Substance: MORPHINE
     Route: 065
  4. CITALOPRAM [Suspect]
     Active Substance: CITALOPRAM HYDROBROMIDE
  5. ESCITALOPRAM [Suspect]
     Active Substance: ESCITALOPRAM OXALATE
  6. BISOPROLOL [Suspect]
     Active Substance: BISOPROLOL

REACTIONS (7)
  - Cardiogenic shock [Fatal]
  - Intensive care [Fatal]
  - Toxicity to various agents [Fatal]
  - Blood pressure decreased [Fatal]
  - Wrong patient received product [Fatal]
  - Hyperkalaemia [Fatal]
  - Bradycardia [Fatal]
